FAERS Safety Report 5074208-9 (Version None)
Quarter: 2006Q3

REPORT INFORMATION
  Report Type: 
  Country: None (occurrence: None)
  Receive Date: 20060714
  Receipt Date: 20060524
  Transmission Date: 20061208
  Serious: No
  Sender: FDA-Public Use
  Company Number: 2006SP002209

PATIENT
  Age: 53 Year
  Sex: Female
  Weight: 90.7194 kg

DRUGS (10)
  1. LUNESTA [Suspect]
     Indication: INSOMNIA
     Dosage: 3 MG;HS;ORAL
     Route: 048
     Dates: start: 20060331, end: 20060522
  2. ZOLOFT [Concomitant]
  3. BUSPAR [Concomitant]
  4. RHINOCORT [Concomitant]
  5. TYLENOL W/ CODEINE [Concomitant]
  6. ALEVE (CAPLET) [Concomitant]
  7. CEPHALEXIN [Concomitant]
  8. AMOXICILLIN + CLAVULANATE POTASSIUM [Concomitant]
  9. AVELOX [Concomitant]
  10. PREDNISONE TAB [Concomitant]

REACTIONS (2)
  - BRONCHITIS [None]
  - DYSGEUSIA [None]
